FAERS Safety Report 16321887 (Version 4)
Quarter: 2021Q1

REPORT INFORMATION
  Report Type: Spontaneous
  Country: US (occurrence: US)
  Receive Date: 20190516
  Receipt Date: 20210105
  Transmission Date: 20210419
  Serious: Yes (Other)
  Sender: FDA-Public Use
  Company Number: US-GLAXOSMITHKLINE-US2019GSK085686

PATIENT
  Age: 44 Year
  Sex: Male

DRUGS (5)
  1. PANTOPRAZOLE                       /01263204/ [Suspect]
     Active Substance: PANTOPRAZOLE SODIUM
     Indication: GASTROOESOPHAGEAL REFLUX DISEASE
     Dosage: 40 MG, QD
     Route: 065
     Dates: start: 201604, end: 201709
  2. PREVACID [Suspect]
     Active Substance: LANSOPRAZOLE
     Indication: PRODUCT USED FOR UNKNOWN INDICATION
     Dosage: UNK
     Route: 065
  3. OMEPRAZOLE                         /00661202/ [Suspect]
     Active Substance: OMEPRAZOLE SODIUM
     Indication: GASTROOESOPHAGEAL REFLUX DISEASE
     Dosage: 20 MG, QD
     Route: 065
     Dates: start: 2002, end: 2018
  4. PANTOPRAZOLE                       /01263204/ [Suspect]
     Active Substance: PANTOPRAZOLE SODIUM
     Dosage: 40 MG, QD
     Route: 065
     Dates: start: 20160406, end: 20170918
  5. PREVACID 24 HR [Suspect]
     Active Substance: LANSOPRAZOLE
     Indication: PRODUCT USED FOR UNKNOWN INDICATION
     Dosage: UNK
     Route: 065

REACTIONS (13)
  - Renal cancer [Unknown]
  - Renal disorder [Unknown]
  - Micturition urgency [Unknown]
  - Pollakiuria [Unknown]
  - Single functional kidney [Unknown]
  - Chronic kidney disease [Recovered/Resolved]
  - Urinary tract obstruction [Unknown]
  - Ureteral disorder [Unknown]
  - Nocturia [Unknown]
  - Nephrectomy [Unknown]
  - Renal cyst [Unknown]
  - Kidney small [Unknown]
  - Renal mass [Unknown]

NARRATIVE: CASE EVENT DATE: 201410
